FAERS Safety Report 4422047-1 (Version None)
Quarter: 2004Q3

REPORT INFORMATION
  Report Type: 
  Country: None (occurrence: None)
  Receive Date: 20040806
  Receipt Date: 20040727
  Transmission Date: 20050211
  Serious: Yes (Disabling, Other)
  Sender: FDA-Public Use
  Company Number: US-JNJFOC-20031005619

PATIENT
  Age: 81 Year
  Sex: Female

DRUGS (9)
  1. DURAGESIC [Suspect]
     Indication: PAIN
     Dosage: 25 UG/HR, TRANSDERMAL
     Route: 062
  2. CELEBREX [Concomitant]
  3. ZOLOFT [Concomitant]
  4. ZOCOR [Concomitant]
  5. PAXIL [Concomitant]
  6. ATENOLOL [Concomitant]
  7. ASA (ACETYLSALICYLIC ACID) TABLETS [Concomitant]
  8. BLOOD PRESSURE MEDICATION (ANTIHYPERTENSIVES) [Concomitant]
  9. DILTIAZEM [Concomitant]

REACTIONS (8)
  - ABDOMINAL PAIN UPPER [None]
  - BURNING SENSATION [None]
  - DEPRESSION [None]
  - DRUG INTERACTION [None]
  - FEELING ABNORMAL [None]
  - HEAD DISCOMFORT [None]
  - SENSATION OF PRESSURE [None]
  - SPONDYLITIS [None]
